FAERS Safety Report 9787654 (Version 1)
Quarter: 2013Q4

REPORT INFORMATION
  Report Type: Spontaneous
  Country: KR (occurrence: KR)
  Receive Date: 20131230
  Receipt Date: 20131230
  Transmission Date: 20140711
  Serious: Yes (Death)
  Sender: FDA-Public Use
  Company Number: KR-JNJFOC-20131216857

PATIENT
  Sex: Male

DRUGS (9)
  1. FINIBAX [Suspect]
     Indication: PNEUMONIA
     Route: 041
     Dates: start: 20130123, end: 20130127
  2. TABAXIN [Concomitant]
     Indication: PNEUMONIA
     Route: 065
     Dates: start: 20130109, end: 20130123
  3. CLARITHROMYCIN [Concomitant]
     Indication: PNEUMONIA
     Route: 065
     Dates: start: 20130109, end: 20130123
  4. BROMHEXINE HCL [Concomitant]
     Indication: PNEUMONIA
     Route: 065
     Dates: start: 20130109, end: 20130127
  5. TRIDOL [Concomitant]
     Indication: PNEUMONIA
     Route: 065
     Dates: start: 20130107, end: 20130127
  6. TULOBUTEROL [Concomitant]
     Indication: PNEUMONIA
     Route: 065
     Dates: start: 20130119, end: 20130126
  7. BIOFLOR [Concomitant]
     Indication: PNEUMONIA
     Route: 065
     Dates: start: 20130123, end: 20130127
  8. ULCERLMIN [Concomitant]
     Indication: PNEUMONIA
     Route: 065
     Dates: start: 20130123, end: 20130127
  9. THEOPHYLLINE [Concomitant]
     Indication: PNEUMONIA
     Route: 065
     Dates: start: 20130123, end: 20130127

REACTIONS (1)
  - Shock [Fatal]
